FAERS Safety Report 10053347 (Version 1)
Quarter: 2014Q2

REPORT INFORMATION
  Report Type: Spontaneous
  Country: AU (occurrence: AU)
  Receive Date: 20140402
  Receipt Date: 20140402
  Transmission Date: 20141212
  Serious: Yes (Other)
  Sender: FDA-Public Use
  Company Number: PHHY2014AU038114

PATIENT
  Sex: Male

DRUGS (1)
  1. GLIVEC [Suspect]
     Indication: CHRONIC EOSINOPHILIC LEUKAEMIA
     Dosage: 400 MG, DAILY

REACTIONS (2)
  - Bone erosion [Unknown]
  - Macrocytosis [Unknown]
